FAERS Safety Report 24178936 (Version 1)
Quarter: 2024Q3

REPORT INFORMATION
  Report Type: Spontaneous
  Country: JP (occurrence: JP)
  Receive Date: 20240806
  Receipt Date: 20240806
  Transmission Date: 20241017
  Serious: Yes (Hospitalization)
  Sender: PFIZER
  Company Number: JP-PFIZER INC-PV202400100008

PATIENT
  Age: 83 Year
  Sex: Male

DRUGS (1)
  1. INFLIXIMAB [Suspect]
     Active Substance: INFLIXIMAB
     Indication: Psoriasis
     Dosage: EVERY 4 WEEKS
     Route: 042

REACTIONS (2)
  - Paradoxical psoriasis [Recovering/Resolving]
  - Off label use [Unknown]
